FAERS Safety Report 9202630 (Version 1)
Quarter: 2013Q2

REPORT INFORMATION
  Report Type: Report from Study
  Country: US (occurrence: US)
  Receive Date: 20130401
  Receipt Date: 20130401
  Transmission Date: 20140414
  Serious: Yes (Other)
  Sender: FDA-Public Use
  Company Number: US-ABBOTT-13P-163-1068196-00

PATIENT
  Sex: Male
  Weight: 67.19 kg

DRUGS (6)
  1. NIASPAN (COATED) [Suspect]
     Indication: ARTERIAL OCCLUSIVE DISEASE
  2. DIURETICS [Concomitant]
     Indication: PRODUCT USED FOR UNKNOWN INDICATION
  3. BLOOD PRESSURE MEDICATION [Concomitant]
     Indication: PRODUCT USED FOR UNKNOWN INDICATION
  4. LOVASTATIN [Concomitant]
     Indication: PRODUCT USED FOR UNKNOWN INDICATION
  5. PLAVIX [Concomitant]
     Indication: PRODUCT USED FOR UNKNOWN INDICATION
  6. MVI [Concomitant]
     Indication: PRODUCT USED FOR UNKNOWN INDICATION

REACTIONS (4)
  - Stent placement [Recovered/Resolved]
  - Stent placement [Recovered/Resolved]
  - Flushing [Recovering/Resolving]
  - Dizziness [Not Recovered/Not Resolved]
